FAERS Safety Report 12302335 (Version 1)
Quarter: 2016Q2

REPORT INFORMATION
  Report Type: Spontaneous
  Country: US (occurrence: US)
  Receive Date: 20160425
  Receipt Date: 20160425
  Transmission Date: 20160815
  Serious: No
  Sender: FDA-Public Use
  Company Number: US-LANNETT COMPANY, INC.-1050980

PATIENT
  Age: 73 Year
  Sex: Female

DRUGS (1)
  1. CODEINE SULFATE. [Suspect]
     Active Substance: CODEINE SULFATE

REACTIONS (2)
  - Malaise [Unknown]
  - Unevaluable event [Unknown]
